FAERS Safety Report 14495286 (Version 1)
Quarter: 2018Q1

REPORT INFORMATION
  Report Type: Spontaneous
  Country: US (occurrence: US)
  Receive Date: 20180206
  Receipt Date: 20180206
  Transmission Date: 20180509
  Serious: No
  Sender: FDA-Public Use
  Company Number: US-SMITH AND NEPHEW, INC-2016SMT01146

PATIENT
  Sex: Female

DRUGS (1)
  1. REGRANEX [Suspect]
     Active Substance: BECAPLERMIN
     Indication: WOUND
     Dosage: UNK, 1X/DAY (12 HOURS ON, 12 HOURS OFF)
     Route: 061

REACTIONS (3)
  - Off label use [Recovered/Resolved]
  - Wound infection [Unknown]
  - Application site pain [Recovered/Resolved]
